FAERS Safety Report 12328705 (Version 1)
Quarter: 2016Q2

REPORT INFORMATION
  Report Type: Spontaneous
  Country: US (occurrence: US)
  Receive Date: 20160503
  Receipt Date: 20160503
  Transmission Date: 20160815
  Serious: No
  Sender: FDA-Public Use
  Company Number: US-BEH-2015050232

PATIENT
  Sex: Female
  Weight: 47 kg

DRUGS (14)
  1. FLUTICASONE PROPIONATE. [Concomitant]
     Active Substance: FLUTICASONE PROPIONATE
  2. DIPHENHYDRAMINE. [Concomitant]
     Active Substance: DIPHENHYDRAMINE
  3. PROAIR HFA [Concomitant]
     Active Substance: ALBUTEROL SULFATE
     Dosage: 90 MCG HFA AER AD
  4. HIZENTRA [Suspect]
     Active Substance: HUMAN IMMUNOGLOBULIN G
     Indication: IMMUNODEFICIENCY COMMON VARIABLE
     Dosage: 1 G
     Route: 058
  5. ACETAMINOPHEN. [Concomitant]
     Active Substance: ACETAMINOPHEN
  6. ZYRTEC [Concomitant]
     Active Substance: CETIRIZINE HYDROCHLORIDE
  7. EPIPEN [Concomitant]
     Active Substance: EPINEPHRINE
     Dosage: AUTO-INJECTOR
  8. SINGULAIR [Concomitant]
     Active Substance: MONTELUKAST SODIUM
  9. NUTROPIN AQ [Concomitant]
     Active Substance: SOMATROPIN
     Dosage: 10 MG/2 ML CATRIDGE
  10. XOPENEX [Concomitant]
     Active Substance: LEVALBUTEROL HYDROCHLORIDE
     Dosage: 0.63 MG/3ML VIAL-NEB
  11. ALPRAZOLAM. [Concomitant]
     Active Substance: ALPRAZOLAM
  12. LIDOCAINE/PRILOCAINE [Concomitant]
  13. HIZENTRA [Suspect]
     Active Substance: HUMAN IMMUNOGLOBULIN G
     Dosage: 2 G
     Route: 058
  14. QVAR [Concomitant]
     Active Substance: BECLOMETHASONE DIPROPIONATE
     Dosage: 40 MCG AER W/ADAP

REACTIONS (1)
  - Nausea [Unknown]
